FAERS Safety Report 7802228-7 (Version None)
Quarter: 2011Q4

REPORT INFORMATION
  Report Type: 
  Country: None (occurrence: None)
  Receive Date: 20111007
  Receipt Date: 20110927
  Transmission Date: 20120403
  Serious: Yes (Other)
  Sender: FDA-Public Use
  Company Number: US-JNJFOC-20110911852

PATIENT
  Sex: Female

DRUGS (1)
  1. REMICADE [Suspect]
     Indication: ILL-DEFINED DISORDER
     Route: 042
     Dates: start: 20100201, end: 20110101

REACTIONS (3)
  - RASH GENERALISED [None]
  - CONTUSION [None]
  - CONDITION AGGRAVATED [None]
